FAERS Safety Report 9559857 (Version 3)
Quarter: 2014Q1

REPORT INFORMATION
  Report Type: Report from Study
  Country: PL (occurrence: PL)
  Receive Date: 20130927
  Receipt Date: 20140123
  Transmission Date: 20141002
  Serious: Yes (Life-Threatening, Hospitalization, Other)
  Sender: FDA-Public Use
  Company Number: PL-MILLENNIUM PHARMACEUTICALS, INC.-2013JNJ000403

PATIENT
  Sex: 0

DRUGS (7)
  1. VELCADE [Suspect]
     Indication: PLASMA CELL MYELOMA
     Dosage: 2.14 MG, UNK
     Route: 065
     Dates: start: 20130423, end: 20130715
  2. VELCADE [Suspect]
     Dosage: 2.0 UNK, UNK
     Route: 065
     Dates: start: 20130813, end: 20130903
  3. DEXAMETHASONE [Suspect]
     Indication: PLASMA CELL MYELOMA
     Dosage: 20 MG, UNK
     Route: 065
     Dates: start: 20130423, end: 20130717
  4. NEBILET [Concomitant]
     Dosage: 5 MG, UNK
  5. HEVIRAN                            /00587301/ [Concomitant]
     Indication: PROPHYLAXIS
  6. CALPEROS                           /00751519/ [Concomitant]
     Indication: PROPHYLAXIS
     Dosage: UNK
     Dates: start: 20130520
  7. POLOCARD [Concomitant]
     Indication: PROPHYLAXIS
     Dosage: UNK
     Dates: start: 20121010

REACTIONS (1)
  - Gastrointestinal haemorrhage [Recovered/Resolved]
